FAERS Safety Report 22354237 (Version 1)
Quarter: 2023Q2

REPORT INFORMATION
  Report Type: Spontaneous
  Country: NL (occurrence: NL)
  Receive Date: 20230523
  Receipt Date: 20230523
  Transmission Date: 20230722
  Serious: Yes (Other)
  Sender: FDA-Public Use
  Company Number: NL-ROCHE-3253281

PATIENT
  Age: 14 Year
  Sex: Male

DRUGS (8)
  1. MYCOPHENOLATE MOFETIL [Suspect]
     Active Substance: MYCOPHENOLATE MOFETIL
     Indication: Pulmonary haemosiderosis
  2. RITUXIMAB [Suspect]
     Active Substance: RITUXIMAB
     Indication: Pulmonary haemosiderosis
  3. METHYLPREDNISOLONE [Suspect]
     Active Substance: METHYLPREDNISOLONE
     Indication: Pulmonary haemosiderosis
  4. PREDNISOLONE [Suspect]
     Active Substance: PREDNISOLONE
     Indication: Lung disorder
  5. HYDROCORTISONE [Concomitant]
     Active Substance: HYDROCORTISONE
     Indication: Pulmonary haemosiderosis
  6. IPRATROPIUM BROMIDE [Concomitant]
     Active Substance: IPRATROPIUM BROMIDE\IPRATROPIUM BROMIDE ANHYDROUS
     Indication: Lung disorder
  7. HYDROXYCHLOROQUINE [Concomitant]
     Active Substance: HYDROXYCHLOROQUINE
     Indication: Pulmonary haemosiderosis
  8. AZITHROMYCIN [Concomitant]
     Active Substance: AZITHROMYCIN
     Indication: Pulmonary haemosiderosis

REACTIONS (2)
  - Respiratory tract infection viral [Unknown]
  - Hypogammaglobulinaemia [Unknown]
